FAERS Safety Report 13013727 (Version 1)
Quarter: 2016Q4

REPORT INFORMATION
  Report Type: Report from Study
  Country: US (occurrence: US)
  Receive Date: 20161209
  Receipt Date: 20161209
  Transmission Date: 20170207
  Serious: Yes (Hospitalization, Other)
  Sender: FDA-Public Use
  Company Number: US-GILEAD-2016-0247321

PATIENT
  Age: 63 Year
  Sex: Male
  Weight: 79 kg

DRUGS (8)
  1. DOCUSOL [Concomitant]
     Active Substance: DOCUSATE SODIUM
  2. EFAVIRENZ/EMTRICITABINE/TENOFOVIR DISOPROXIL FUMARATE [Suspect]
     Active Substance: EFAVIRENZ\EMTRICITABINE\TENOFOVIR DISOPROXIL FUMARATE
     Indication: HIV INFECTION
     Dosage: 1 DF, QD
     Route: 048
     Dates: start: 20100704
  3. ACETAMINOPHEN. [Concomitant]
     Active Substance: ACETAMINOPHEN
  4. HYDROCHLOROTHIAZIDE. [Concomitant]
     Active Substance: HYDROCHLOROTHIAZIDE
  5. ATENOLOL. [Concomitant]
     Active Substance: ATENOLOL
  6. KEPPRA [Concomitant]
     Active Substance: LEVETIRACETAM
  7. HYDROCODONE [Concomitant]
     Active Substance: HYDROCODONE
  8. FAMOTIDINE. [Concomitant]
     Active Substance: FAMOTIDINE

REACTIONS (1)
  - Syncope [Recovered/Resolved]

NARRATIVE: CASE EVENT DATE: 20160813
